FAERS Safety Report 5474087-1 (Version None)
Quarter: 2007Q3

REPORT INFORMATION
  Report Type: 
  Country: None (occurrence: None)
  Receive Date: 20070928
  Receipt Date: 20070928
  Transmission Date: 20080115
  Serious: No
  Sender: FDA-Public Use
  Company Number: None

PATIENT
  Sex: Male
  Weight: 112.0385 kg

DRUGS (1)
  1. OXYCODONE ER [Suspect]
     Indication: PAIN IN EXTREMITY
     Dosage: 30MG TWICE DAILY PO
     Route: 048
     Dates: start: 20070811, end: 20070911

REACTIONS (1)
  - NAUSEA [None]
